FAERS Safety Report 18360077 (Version 3)
Quarter: 2020Q4

REPORT INFORMATION
  Report Type: Spontaneous
  Country: CH (occurrence: CH)
  Receive Date: 20201008
  Receipt Date: 20201120
  Transmission Date: 20210114
  Serious: Yes (Other)
  Sender: FDA-Public Use
  Company Number: CH-ROCHE-2690795

PATIENT
  Sex: Male

DRUGS (5)
  1. XOLAIR [Suspect]
     Active Substance: OMALIZUMAB
     Dosage: 2 AMPOULES, QMO
     Route: 058
     Dates: start: 20200812
  2. XOLAIR [Suspect]
     Active Substance: OMALIZUMAB
     Dosage: UNK
     Route: 065
     Dates: start: 20201007
  3. XOLAIR [Suspect]
     Active Substance: OMALIZUMAB
     Dosage: 1 AMPOULES, QMO
     Route: 058
     Dates: start: 20200710
  4. XOLAIR [Suspect]
     Active Substance: OMALIZUMAB
     Indication: ASTHMA
     Dosage: 3 AMPOULES, QMO
     Route: 058
     Dates: start: 201810, end: 201904
  5. XOLAIR [Suspect]
     Active Substance: OMALIZUMAB
     Dosage: UNK
     Route: 058
     Dates: start: 20200909

REACTIONS (5)
  - Weight increased [Recovering/Resolving]
  - Malaise [Recovering/Resolving]
  - Libido decreased [Not Recovered/Not Resolved]
  - Thirst [Recovering/Resolving]
  - Male sexual dysfunction [Not Recovered/Not Resolved]
